FAERS Safety Report 8532779 (Version 4)
Quarter: 2013Q4

REPORT INFORMATION
  Report Type: Report from Study
  Country: BR (occurrence: BR)
  Receive Date: 20120426
  Receipt Date: 20131206
  Transmission Date: 20140711
  Serious: Yes (Hospitalization, Other)
  Sender: FDA-Public Use
  Company Number: BR-ROCHE-1061114

PATIENT
  Sex: Female
  Weight: 55 kg

DRUGS (8)
  1. ACTEMRA [Suspect]
     Indication: RHEUMATOID ARTHRITIS
     Route: 065
     Dates: start: 20101001, end: 201203
  2. ACTEMRA [Suspect]
     Dosage: LATEST INFUSION WAS PERFORMED ON 25-OCT-2013
     Route: 065
  3. SYNTHROID [Concomitant]
     Route: 065
  4. DEFLAZACORT [Concomitant]
     Route: 065
  5. OMEPRAZOL [Concomitant]
     Route: 065
  6. DIPYRONE [Concomitant]
     Indication: PAIN
  7. LIPITOR [Concomitant]
  8. PROFENID [Concomitant]

REACTIONS (3)
  - Gallbladder injury [Recovered/Resolved]
  - Hepatitis [Recovered/Resolved]
  - Pancreatitis [Recovered/Resolved]
